FAERS Safety Report 20006833 (Version 1)
Quarter: 2021Q4

REPORT INFORMATION
  Report Type: Spontaneous
  Country: US (occurrence: US)
  Receive Date: 20211028
  Receipt Date: 20211028
  Transmission Date: 20220303
  Serious: Yes (Death, Other)
  Sender: FDA-Public Use
  Company Number: US-SA-SAC20211028000122

PATIENT
  Age: 46 Year
  Sex: Male

DRUGS (1)
  1. ZANTAC [Suspect]
     Active Substance: RANITIDINE HYDROCHLORIDE
     Indication: Dyspepsia
     Dosage: UNK, QD
     Dates: start: 198301, end: 201201

REACTIONS (3)
  - Ovarian cancer stage IV [Fatal]
  - Uterine cancer [Fatal]
  - Cervix carcinoma stage IV [Fatal]

NARRATIVE: CASE EVENT DATE: 20110101
